FAERS Safety Report 6163774-8 (Version None)
Quarter: 2009Q2

REPORT INFORMATION
  Report Type: 
  Country: None (occurrence: None)
  Receive Date: 20090422
  Receipt Date: 20090414
  Transmission Date: 20091009
  Serious: Yes (Hospitalization)
  Sender: FDA-Public Use
  Company Number: JP-JNJFOC-20090404837

PATIENT
  Age: 86 Year
  Sex: Female

DRUGS (12)
  1. CRAVIT [Suspect]
     Indication: URINARY TRACT INFECTION
     Route: 048
  2. LASIX [Suspect]
     Indication: DRUG USE FOR UNKNOWN INDICATION
     Route: 065
  3. DIOVAN [Suspect]
     Indication: DRUG USE FOR UNKNOWN INDICATION
     Route: 065
  4. ARTIST [Concomitant]
     Route: 065
  5. LOCHOL [Concomitant]
     Route: 065
  6. ASPIRIN [Concomitant]
     Route: 065
  7. PARIET [Concomitant]
     Route: 065
  8. WARFARIN SODIUM [Concomitant]
     Route: 065
  9. WARFARIN POTASSIUM [Concomitant]
     Route: 065
  10. PURSENNIDE [Concomitant]
     Dosage: AT THE TIME OF CONSTIPATION
     Route: 065
  11. THYRADIN-S [Concomitant]
     Route: 065
  12. SODIUM BICARBONATE [Concomitant]
     Route: 065

REACTIONS (1)
  - RENAL TUBULAR DISORDER [None]
